FAERS Safety Report 4401205-6 (Version None)
Quarter: 2004Q3

REPORT INFORMATION
  Report Type: 
  Country: None (occurrence: None)
  Receive Date: 20040907
  Receipt Date: 20031218
  Transmission Date: 20050211
  Serious: No
  Sender: FDA-Public Use
  Company Number: US-BRISTOL-MYERS SQUIBB COMPANY-12461745

PATIENT
  Age: 69 Year
  Sex: Male
  Weight: 108 kg

DRUGS (3)
  1. COUMADIN [Suspect]
     Indication: HEART RATE INCREASED
     Route: 048
     Dates: start: 20031014
  2. DIOVAN [Concomitant]
  3. TOPROL-XL [Concomitant]

REACTIONS (1)
  - COUGH [None]
